FAERS Safety Report 5871596-8 (Version None)
Quarter: 2008Q3

REPORT INFORMATION
  Report Type: 
  Country: None (occurrence: None)
  Receive Date: 20080905
  Receipt Date: 20080619
  Transmission Date: 20090109
  Serious: No
  Sender: FDA-Public Use
  Company Number: A0733911A

PATIENT
  Age: 62 Year
  Sex: Male

DRUGS (6)
  1. REQUIP [Suspect]
     Indication: PARKINSON'S DISEASE
     Dosage: 4MG FOUR TIMES PER DAY
     Route: 048
  2. ATENOLOL [Concomitant]
  3. COZAAR [Concomitant]
  4. AZILECT [Concomitant]
  5. ZETIA [Concomitant]
  6. LIPITOR [Concomitant]

REACTIONS (2)
  - FATIGUE [None]
  - YAWNING [None]
